FAERS Safety Report 6394945-3 (Version None)
Quarter: 2009Q4

REPORT INFORMATION
  Report Type: 
  Country: None (occurrence: None)
  Receive Date: 20091009
  Receipt Date: 20091005
  Transmission Date: 20100525
  Serious: Yes (Hospitalization, Other)
  Sender: FDA-Public Use
  Company Number: GB-PFIZER INC-2009256907

PATIENT
  Age: 82 Year

DRUGS (1)
  1. XALATAN [Suspect]
     Dosage: 1 GTT, 1X/DAY
     Route: 047

REACTIONS (3)
  - ARTHRITIS [None]
  - BLOOD PRESSURE INCREASED [None]
  - CATARACT OPERATION [None]
